FAERS Safety Report 10482906 (Version 2)
Quarter: 2014Q3

REPORT INFORMATION
  Report Type: Report from Study
  Country: GR (occurrence: GR)
  Receive Date: 20140929
  Receipt Date: 20140929
  Transmission Date: 20150326
  Serious: Yes (Other)
  Sender: FDA-Public Use
  Company Number: PHHY2014GR105987

PATIENT
  Age: 65 Year
  Sex: Female
  Weight: 58 kg

DRUGS (5)
  1. INEGY [Concomitant]
     Active Substance: EZETIMIBE\SIMVASTATIN
     Dosage: 1 DF, QD
  2. PLAVIX [Concomitant]
     Active Substance: CLOPIDOGREL BISULFATE
     Dosage: 75 MG, QD
  3. AFINITOR [Suspect]
     Active Substance: EVEROLIMUS
     Indication: BREAST CANCER
     Dosage: 10 MG, QD
     Route: 048
  4. AROMASIN [Concomitant]
     Active Substance: EXEMESTANE
     Dosage: 25 MG, QD
  5. AFINITOR [Suspect]
     Active Substance: EVEROLIMUS
     Dosage: 10 MG, UNK

REACTIONS (11)
  - Pyrexia [Unknown]
  - Pollakiuria [Unknown]
  - Mucosal inflammation [Recovering/Resolving]
  - Dysgeusia [Recovering/Resolving]
  - Ageusia [Unknown]
  - Stomatitis [Recovering/Resolving]
  - Oedema peripheral [Unknown]
  - Tongue disorder [Recovering/Resolving]
  - Decreased appetite [Unknown]
  - Convulsion [Unknown]
  - Cough [Unknown]

NARRATIVE: CASE EVENT DATE: 20140916
